FAERS Safety Report 18205356 (Version 2)
Quarter: 2020Q4

REPORT INFORMATION
  Report Type: Report from Study
  Country: US (occurrence: US)
  Receive Date: 20200827
  Receipt Date: 20201116
  Transmission Date: 20210113
  Serious: Yes (Life-Threatening, Hospitalization, Other)
  Sender: FDA-Public Use
  Company Number: US-GILEAD-2020-0480282

PATIENT
  Age: 68 Year
  Sex: Female
  Weight: 102 kg

DRUGS (41)
  1. DAYPRO [Concomitant]
     Active Substance: OXAPROZIN
  2. POTASSIUM CHLORIDE. [Concomitant]
     Active Substance: POTASSIUM CHLORIDE
  3. HYDROXYZINE [Concomitant]
     Active Substance: HYDROXYZINE HYDROCHLORIDE
     Indication: AGITATION
     Dosage: UNK, PRN
  4. BISACODYL. [Concomitant]
     Active Substance: BISACODYL
     Dosage: UNK, PRN
  5. LIDOCAINE. [Concomitant]
     Active Substance: LIDOCAINE
     Indication: ORAL PAIN
     Dosage: UNK, PRN
     Dates: start: 20201012
  6. CHONDROITIN GLUCOSAMIN [Concomitant]
     Active Substance: CHONDROITIN SULFATE A\GLUCOSAMINE
  7. SILDENAFIL. [Concomitant]
     Active Substance: SILDENAFIL
  8. MOMETASONE [Concomitant]
     Active Substance: MOMETASONE
  9. CYANOCOBALAMIN. [Concomitant]
     Active Substance: CYANOCOBALAMIN
  10. BUSPIRONE [Concomitant]
     Active Substance: BUSPIRONE HYDROCHLORIDE
  11. SENNA LAXATIVE [Concomitant]
     Active Substance: SENNOSIDES
  12. POLYETHYLENE GLYCOL 3350. [Concomitant]
     Active Substance: POLYETHYLENE GLYCOL 3350
  13. NYSTATIN TOPICAL [Concomitant]
  14. AMOXICILLIN. [Concomitant]
     Active Substance: AMOXICILLIN
     Dosage: BEFORE DENTAL PROCEDURE
  15. ACETAMINOPHEN. [Concomitant]
     Active Substance: ACETAMINOPHEN
     Dosage: UNK, PRN
  16. LASIX [Concomitant]
     Active Substance: FUROSEMIDE
  17. CALCIUM WITH VITAMIN D [CALCIUM CARBONATE;COLECALCIFEROL] [Concomitant]
  18. METRONIDAZOLE. [Concomitant]
     Active Substance: METRONIDAZOLE
  19. FLAX [Concomitant]
  20. DEXILANT [Concomitant]
     Active Substance: DEXLANSOPRAZOLE
  21. LYSINE [Concomitant]
     Active Substance: LYSINE
  22. ZOLOFT [Concomitant]
     Active Substance: SERTRALINE HYDROCHLORIDE
  23. INSULIN LISPRO [Concomitant]
     Active Substance: INSULIN LISPRO
  24. OCULAR LUBRICANT [HYPROMELLOSE] [Concomitant]
     Active Substance: HYPROMELLOSES
     Dosage: UNK, PRN
  25. URSODIOL. [Concomitant]
     Active Substance: URSODIOL
     Dosage: UNK
     Dates: start: 20201022
  26. OXYCODONE [Concomitant]
     Active Substance: OXYCODONE
  27. MELATONIN [Concomitant]
     Active Substance: MELATONIN
  28. ASCORBIC ACID. [Concomitant]
     Active Substance: ASCORBIC ACID
  29. ASPIRIN 81MG [Concomitant]
     Active Substance: ASPIRIN
  30. TRIAMCINOLONE TOPICAL [Concomitant]
  31. TOLTERODINE [Concomitant]
     Active Substance: TOLTERODINE
  32. CHOLECALCIFEROL [Concomitant]
     Active Substance: CHOLECALCIFEROL
  33. AMBRISENTAN [Suspect]
     Active Substance: AMBRISENTAN
     Indication: PULMONARY ARTERIAL HYPERTENSION
     Dosage: 10 MG, QD
     Route: 048
     Dates: start: 20171027, end: 202007
  34. ADVAIR HFA [Concomitant]
     Active Substance: FLUTICASONE PROPIONATE\SALMETEROL XINAFOATE
  35. ALBUTEROL HFA [Concomitant]
     Active Substance: ALBUTEROL SULFATE
  36. LEVOTHYROXINE. [Concomitant]
     Active Substance: LEVOTHYROXINE
  37. GABAPENTIN. [Concomitant]
     Active Substance: GABAPENTIN
  38. MAGNESIUM HYDROXIDE. [Concomitant]
     Active Substance: MAGNESIUM HYDROXIDE
  39. BIOTIN [Concomitant]
     Active Substance: BIOTIN
  40. ENOXAPARIN [Concomitant]
     Active Substance: ENOXAPARIN
  41. PREDNISONE. [Concomitant]
     Active Substance: PREDNISONE
     Dosage: UNK
     Dates: start: 20200918

REACTIONS (3)
  - COVID-19 [Recovered/Resolved]
  - Terminal state [Recovered/Resolved]
  - Liver disorder [Not Recovered/Not Resolved]

NARRATIVE: CASE EVENT DATE: 20200628
